FAERS Safety Report 17213509 (Version 1)
Quarter: 2019Q4

REPORT INFORMATION
  Report Type: Spontaneous
  Country: CA (occurrence: CA)
  Receive Date: 20191230
  Receipt Date: 20191230
  Transmission Date: 20200122
  Serious: Yes (Other)
  Sender: FDA-Public Use
  Company Number: CA-PFIZER INC-2019554207

PATIENT
  Age: 28 Year
  Sex: Male

DRUGS (5)
  1. VINCRISTINE SULFATE. [Suspect]
     Active Substance: VINCRISTINE SULFATE
     Indication: PARAGANGLION NEOPLASM
     Dosage: UNK
  2. LUTETIUM (LU 177) [Suspect]
     Active Substance: LUTETIUM LU-177
     Indication: PARAGANGLION NEOPLASM
     Dosage: UNK
  3. DACARBAZINE. [Suspect]
     Active Substance: DACARBAZINE
     Indication: PARAGANGLION NEOPLASM
     Dosage: UNK
  4. SUNITINIB MALATE. [Suspect]
     Active Substance: SUNITINIB MALATE
     Indication: PARAGANGLION NEOPLASM
     Dosage: UNK
  5. PROCYTOX [Suspect]
     Active Substance: CYCLOPHOSPHAMIDE
     Indication: PARAGANGLION NEOPLASM
     Dosage: UNK

REACTIONS (4)
  - Product use in unapproved indication [Unknown]
  - Toxicity to various agents [Unknown]
  - Neoplasm progression [Unknown]
  - Off label use [Unknown]
